FAERS Safety Report 5136724-0 (Version None)
Quarter: 2006Q4

REPORT INFORMATION
  Report Type: 
  Country: None (occurrence: None)
  Receive Date: 20061023
  Receipt Date: 20060804
  Transmission Date: 20070319
  Serious: Yes (Death, Hospitalization, Other)
  Sender: FDA-Public Use
  Company Number: 229550

PATIENT
  Age: 64 Year
  Sex: Male

DRUGS (3)
  1. MABTHERA                  (RITUXIMAB) [Suspect]
     Indication: MANTLE CELL LYMPHOMA
     Dates: start: 20060223
  2. ZEVALIN [Suspect]
     Indication: MANTLE CELL LYMPHOMA
     Dates: start: 20060302
  3. YTRACIS (YTTRIUM-90) [Suspect]
     Indication: MANTLE CELL LYMPHOMA
     Dosage: 0.3 MCI/KG
     Dates: start: 20060302

REACTIONS (9)
  - BONE MARROW DISORDER [None]
  - CONTUSION [None]
  - DISEASE RECURRENCE [None]
  - FALL [None]
  - MANTLE CELL LYMPHOMA [None]
  - PANCYTOPENIA [None]
  - SUBDURAL HAEMATOMA [None]
  - THROMBOCYTOPENIA [None]
  - WHITE BLOOD CELL COUNT DECREASED [None]
